FAERS Safety Report 9691122 (Version 1)
Quarter: 2013Q4

REPORT INFORMATION
  Report Type: Spontaneous
  Country: IT (occurrence: IT)
  Receive Date: 20131115
  Receipt Date: 20131115
  Transmission Date: 20140711
  Serious: Yes (Hospitalization)
  Sender: FDA-Public Use
  Company Number: IT-BRISTOL-MYERS SQUIBB COMPANY-19793280

PATIENT
  Age: 68 Year
  Sex: Female

DRUGS (9)
  1. COUMADIN TABS 5 MG [Suspect]
     Indication: ATRIAL FIBRILLATION
     Dosage: 1DF:1 UNIT
     Route: 048
     Dates: start: 20130101, end: 20131007
  2. LORTAAN [Concomitant]
     Dosage: 2DF: 2 DOSAGE UNITS.?LORTAAN 50 MG TABS
     Route: 048
  3. TORVAST [Concomitant]
     Dosage: 1DF:40 TABS
     Route: 048
  4. ZYLORIC [Concomitant]
     Dosage: ZYLORIC 300 MG TABLETS
     Route: 048
  5. CARDIOASPIRIN [Concomitant]
     Dosage: TABS
     Route: 048
  6. PANTORC [Concomitant]
     Dosage: GASTRO-RESISTANT TABLETS
     Route: 048
  7. CARDICOR [Concomitant]
     Dosage: TABLETS
     Route: 048
  8. KANRENOL [Concomitant]
     Dosage: KANRENOL 100 MG TABLETS
     Route: 048
  9. LASIX [Concomitant]
     Dosage: TABS
     Route: 048

REACTIONS (3)
  - Cough [Unknown]
  - Myocardial ischaemia [Unknown]
  - Spontaneous haematoma [Unknown]
